FAERS Safety Report 4776354-3 (Version None)
Quarter: 2005Q3

REPORT INFORMATION
  Report Type: 
  Country: None (occurrence: None)
  Receive Date: 20050921
  Receipt Date: 20050912
  Transmission Date: 20060218
  Serious: Yes (Hospitalization)
  Sender: FDA-Public Use
  Company Number: FR_050406176

PATIENT
  Age: 50 Year
  Sex: Female
  Weight: 55 kg

DRUGS (3)
  1. ZYPREXA [Suspect]
     Indication: SCHIZOPHRENIA
     Dates: start: 20050314
  2. LEPTICUR (TROPATEPINE HYDROCHLORIDE) [Concomitant]
  3. HAVLANE (LOPRAZOLAM MESILATE) [Concomitant]

REACTIONS (6)
  - AGITATION [None]
  - ALCOHOL POISONING [None]
  - ANXIETY [None]
  - DYSPHORIA [None]
  - DYSTHYMIC DISORDER [None]
  - LOGORRHOEA [None]
